FAERS Safety Report 13553995 (Version 3)
Quarter: 2017Q2

REPORT INFORMATION
  Report Type: Spontaneous
  Country: CN (occurrence: CN)
  Receive Date: 20170517
  Receipt Date: 20170607
  Transmission Date: 20170830
  Serious: Yes (Hospitalization, Other)
  Sender: FDA-Public Use
  Company Number: CN-GLAXOSMITHKLINE-CN2017GSK070397

PATIENT
  Sex: Male
  Weight: 14 kg

DRUGS (2)
  1. VALPROIC ACID SODIUM [Suspect]
     Active Substance: VALPROIC ACID
     Indication: EPILEPSY
     Dosage: UNK
     Route: 048
  2. LAMICTAL [Suspect]
     Active Substance: LAMOTRIGINE
     Indication: EPILEPSY
     Dosage: UNK
     Route: 048

REACTIONS (14)
  - Hyperpyrexia [Unknown]
  - Blister [Unknown]
  - Skin exfoliation [Unknown]
  - Eye discharge [Unknown]
  - Erythema [Unknown]
  - Rash generalised [Unknown]
  - Oral discomfort [Unknown]
  - Oral mucosa erosion [Unknown]
  - Urethral discharge [Unknown]
  - Anorectal disorder [Unknown]
  - Wrong technique in product usage process [Unknown]
  - Stevens-Johnson syndrome [Unknown]
  - Onychomadesis [Unknown]
  - Overdose [Unknown]
